FAERS Safety Report 8452453-X (Version None)
Quarter: 2012Q2

REPORT INFORMATION
  Report Type: 
  Country: None (occurrence: None)
  Receive Date: 20120620
  Receipt Date: 20120615
  Transmission Date: 20120825
  Serious: No
  Sender: FDA-Public Use
  Company Number: US-PFIZER INC-2012145141

PATIENT
  Sex: Female
  Weight: 100 kg

DRUGS (8)
  1. AMBIEN [Suspect]
     Indication: SLEEP DISORDER
     Dosage: 10 MG DAILY AT BED TIME
  2. PAROXETINE [Interacting]
     Indication: PREMENSTRUAL SYNDROME
     Dosage: 30 MG, 7 DAYS A MONTH
     Dates: start: 20071201
  3. DIAZEPAM [Interacting]
     Dosage: UNK
  4. PAROXETINE [Interacting]
  5. LYRICA [Interacting]
     Dosage: 75 MG, UNK
     Dates: end: 20110201
  6. DILTIAZEM [Concomitant]
     Indication: HYPERTENSION
     Dosage: 120 MG, 2X/DAY
  7. LYRICA [Interacting]
     Indication: MOOD SWINGS
     Dosage: 100 MG, UNK
     Dates: start: 20100101
  8. PAROXETINE [Interacting]
     Indication: FATIGUE

REACTIONS (7)
  - MEMORY IMPAIRMENT [None]
  - INHIBITORY DRUG INTERACTION [None]
  - BALANCE DISORDER [None]
  - DISTURBANCE IN ATTENTION [None]
  - DYSGEUSIA [None]
  - SOMNOLENCE [None]
  - POTENTIATING DRUG INTERACTION [None]
